FAERS Safety Report 12862071 (Version 1)
Quarter: 2016Q4

REPORT INFORMATION
  Report Type: Spontaneous
  Country: PR (occurrence: PR)
  Receive Date: 20161019
  Receipt Date: 20161019
  Transmission Date: 20170207
  Serious: No
  Sender: FDA-Public Use
  Company Number: PR-PFIZER INC-2016485839

PATIENT
  Age: 67 Year
  Sex: Female
  Weight: 79.37 kg

DRUGS (1)
  1. IBRANCE [Suspect]
     Active Substance: PALBOCICLIB
     Indication: BREAST CANCER FEMALE
     Dosage: 125 MG, DAILY
     Route: 048
     Dates: start: 20160920

REACTIONS (3)
  - Haemoglobin decreased [Unknown]
  - Dysgeusia [Unknown]
  - White blood cell count decreased [Unknown]

NARRATIVE: CASE EVENT DATE: 2016
